FAERS Safety Report 4555441-9 (Version None)
Quarter: 2004Q4

REPORT INFORMATION
  Report Type: 
  Country: None (occurrence: None)
  Receive Date: 20041220
  Receipt Date: 20040219
  Transmission Date: 20050328
  Serious: Yes (Other)
  Sender: FDA-Public Use
  Company Number: US-JNJFOC-20040204527

PATIENT
  Age: 64 Year
  Sex: Female
  Weight: 107.5025 kg

DRUGS (12)
  1. RETAVASE (RETEPLASE) LYOPHILIZED POWDER [Suspect]
     Indication: FEMORAL ARTERY OCCLUSION
     Dosage: INTRAVENOUS
     Route: 042
     Dates: start: 20040219
  2. CHLORACON (ALL OTHER THERAPEUTIC PRODUCTS) [Concomitant]
  3. ZIAC (BISELECT) [Concomitant]
  4. VASOTEC [Concomitant]
  5. LIPITOR [Concomitant]
  6. LASIX [Concomitant]
  7. EFFEXOR [Concomitant]
  8. LEVOXYL [Concomitant]
  9. FOLIC ACID [Concomitant]
  10. ELAVIL [Concomitant]
  11. GLUCOPHAGE [Concomitant]
  12. NOVALOG (METAMIZOLE SODIUM) [Concomitant]

REACTIONS (1)
  - THERAPEUTIC RESPONSE DECREASED [None]
